FAERS Safety Report 17363116 (Version 1)
Quarter: 2020Q1

REPORT INFORMATION
  Report Type: Spontaneous
  Country: FR (occurrence: FR)
  Receive Date: 20200203
  Receipt Date: 20200203
  Transmission Date: 20200409
  Serious: Yes (Other)
  Sender: FDA-Public Use
  Company Number: FR-MYLANLABS-2020M1011600

PATIENT
  Age: 9 Month
  Sex: Male

DRUGS (1)
  1. VANCOMYCIN MYLAN [Suspect]
     Active Substance: VANCOMYCIN
     Indication: SKIN INFECTION
     Dosage: 400 MILLIGRAM, TOTAL
     Route: 042
     Dates: start: 20191113

REACTIONS (4)
  - Accidental overdose [Recovered/Resolved]
  - Medication error [Recovered/Resolved]
  - Rash [Recovering/Resolving]
  - Wrong rate [Recovered/Resolved]

NARRATIVE: CASE EVENT DATE: 20191113
